FAERS Safety Report 4868856-6 (Version None)
Quarter: 2005Q4

REPORT INFORMATION
  Report Type: 
  Country: None (occurrence: None)
  Receive Date: 20051223
  Receipt Date: 20051219
  Transmission Date: 20060501
  Serious: Yes (Other)
  Sender: FDA-Public Use
  Company Number: SUS1-2005-00935

PATIENT
  Age: 49 Year
  Sex: Female

DRUGS (7)
  1. PENTASA [Suspect]
     Indication: COLITIS
     Dosage: ORAL
     Route: 048
     Dates: start: 20051124, end: 20051125
  2. SIMVASTATIN [Concomitant]
  3. TAMOXIFEN CITRATE [Concomitant]
  4. FOLIC ACID [Concomitant]
  5. PREDNISOLONE [Concomitant]
  6. POTASSIUM CHLORIDE [Concomitant]
  7. FORTISIP (PROTEIN, VITAMINS NOS, MINERALS NOS, FATS NOS) [Concomitant]

REACTIONS (3)
  - HYPOAESTHESIA [None]
  - INFLAMMATION [None]
  - JOINT SWELLING [None]
